FAERS Safety Report 21785143 (Version 4)
Quarter: 2023Q4

REPORT INFORMATION
  Report Type: Spontaneous
  Country: FR (occurrence: FR)
  Receive Date: 20221227
  Receipt Date: 20231214
  Transmission Date: 20240109
  Serious: Yes (Life-Threatening, Other)
  Sender: FDA-Public Use
  Company Number: FR-Accord-283155

PATIENT

DRUGS (5)
  1. DEXAMETHASONE [Suspect]
     Active Substance: DEXAMETHASONE
     Indication: Plasma cell myeloma
     Dosage: 20 MG, ON DAYS 1, 4, 8 AND 11 IN A 21-DAY CYCLE SCHEDULED FOR 2 TO 3 CYCLES, FOLLOWED BY SCHEDULED
     Route: 048
  2. BORTEZOMIB [Suspect]
     Active Substance: BORTEZOMIB
     Indication: Plasma cell myeloma
     Dosage: 1.3 MG/M2, ON DAYS 1, 4, 8 AND 11 IN A 21-DAY CYCLE SCHEDULED FOR 2 TO 3 CYCLES, FOLLOWED BY SCHED
     Route: 058
  3. SULFAMETHOXAZOLE\TRIMETHOPRIM [Concomitant]
     Active Substance: SULFAMETHOXAZOLE\TRIMETHOPRIM
     Indication: Antibiotic therapy
     Dosage: UNK
     Route: 065
  4. AMOXICILLIN [Concomitant]
     Active Substance: AMOXICILLIN
     Indication: Antibiotic therapy
     Dosage: UNK
     Route: 065
  5. ACYCLOVIR [Concomitant]
     Active Substance: ACYCLOVIR
     Indication: Antiviral prophylaxis
     Dosage: UNK
     Route: 065

REACTIONS (3)
  - Drug ineffective [Unknown]
  - Disease progression [Unknown]
  - Gastrointestinal toxicity [Unknown]
